FAERS Safety Report 23250370 (Version 6)
Quarter: 2024Q4

REPORT INFORMATION
  Report Type: Spontaneous
  Country: US (occurrence: US)
  Receive Date: 20231201
  Receipt Date: 20241113
  Transmission Date: 20250115
  Serious: Yes (Other)
  Sender: PFIZER
  Company Number: US-PFIZER INC-PV202300030216

PATIENT
  Age: 74 Year
  Sex: Female

DRUGS (6)
  1. IBRANCE [Suspect]
     Active Substance: PALBOCICLIB
     Indication: Breast cancer female
     Dosage: 125 MG DAYS 1-21 Q28 DAYS
     Route: 048
     Dates: start: 20220916, end: 2022
  2. IBRANCE [Suspect]
     Active Substance: PALBOCICLIB
     Indication: Bone neoplasm
     Dosage: 100 MG, DAYS 1-21 Q28 DAYS
     Route: 048
     Dates: start: 20221124
  3. IBRANCE [Suspect]
     Active Substance: PALBOCICLIB
     Indication: Malignant lymphoid neoplasm
     Dosage: 100 MG, DAYS 1-21 Q28 DAYS
     Route: 048
     Dates: start: 20230214, end: 20241105
  4. IBRANCE [Suspect]
     Active Substance: PALBOCICLIB
     Indication: Osteopenia
     Dosage: 1 TABLET (100 MG) DAILY,  DAYS 1-21 OF EACH 28 DAY CYCLE, THREE WEEKS ON, ONE WEEK OFF
     Route: 048
     Dates: start: 20241106
  5. IBRANCE [Suspect]
     Active Substance: PALBOCICLIB
     Indication: Tumour pain
  6. LETROZOLE [Concomitant]
     Active Substance: LETROZOLE
     Dosage: 2.5 MG DAILY
     Dates: start: 202206

REACTIONS (3)
  - Neutropenia [Recovering/Resolving]
  - Alopecia [Unknown]
  - Weight decreased [Unknown]

NARRATIVE: CASE EVENT DATE: 20241025
